FAERS Safety Report 5691431-0 (Version None)
Quarter: 2008Q1

REPORT INFORMATION
  Report Type: 
  Country: None (occurrence: None)
  Receive Date: 20080331
  Receipt Date: 20080317
  Transmission Date: 20080703
  Serious: Yes (Hospitalization)
  Sender: FDA-Public Use
  Company Number: ABX55-08-0101

PATIENT
  Age: 58 Year
  Sex: Male

DRUGS (2)
  1. ABRAXANE [Suspect]
     Indication: METASTATIC MALIGNANT MELANOMA
     Dosage: (120 MG/M2), INTRAVENOUS
     Route: 042
     Dates: start: 20080205, end: 20080311
  2. AVASTIN [Suspect]
     Indication: METASTATIC MALIGNANT MELANOMA
     Dosage: (10 MG/KG), INTRAVENOUS
     Route: 042
     Dates: start: 20080205, end: 20080311

REACTIONS (2)
  - MACULAR OEDEMA [None]
  - VISUAL ACUITY REDUCED [None]
